FAERS Safety Report 18142455 (Version 3)
Quarter: 2020Q4

REPORT INFORMATION
  Report Type: Spontaneous
  Country: US (occurrence: US)
  Receive Date: 20200812
  Receipt Date: 20201106
  Transmission Date: 20210113
  Serious: Yes (Other)
  Sender: FDA-Public Use
  Company Number: US-TAKEDA-2020TUS034422

PATIENT
  Age: 73 Year
  Sex: Male
  Weight: 101.5 kg

DRUGS (1)
  1. NINLARO [Suspect]
     Active Substance: IXAZOMIB CITRATE
     Indication: PLASMA CELL MYELOMA
     Dosage: 4 MILLIGRAM
     Route: 048
     Dates: start: 20200505

REACTIONS (6)
  - Back pain [Unknown]
  - Hot flush [Unknown]
  - Weight decreased [Unknown]
  - Appetite disorder [Unknown]
  - Blood count abnormal [Unknown]
  - Gait disturbance [Unknown]

NARRATIVE: CASE EVENT DATE: 202006
